FAERS Safety Report 9740101 (Version 1)
Quarter: 2013Q4

REPORT INFORMATION
  Report Type: Spontaneous
  Country: ES (occurrence: ES)
  Receive Date: 20131209
  Receipt Date: 20131209
  Transmission Date: 20140711
  Serious: Yes (Other)
  Sender: FDA-Public Use
  Company Number: ES-GLAXOSMITHKLINE-B0951630A

PATIENT
  Age: 70 Year
  Sex: Male

DRUGS (2)
  1. INALADUO [Suspect]
     Indication: PRODUCT USED FOR UNKNOWN INDICATION
     Route: 055
  2. SALMETEROL XINAFOATE + FLUTICASONE PROPIONATE [Concomitant]

REACTIONS (1)
  - Coeliac disease [Unknown]
